FAERS Safety Report 7440099-1 (Version None)
Quarter: 2011Q2

REPORT INFORMATION
  Report Type: 
  Country: None (occurrence: None)
  Receive Date: 20110427
  Receipt Date: 20110420
  Transmission Date: 20111010
  Serious: Yes (Death, Life-Threatening, Hospitalization, Other)
  Sender: FDA-Public Use
  Company Number: JP-CELGENEUS-087-21880-11011446

PATIENT
  Sex: Male

DRUGS (39)
  1. LENADEX [Suspect]
     Dosage: 20 MILLIGRAM
     Route: 048
     Dates: start: 20110127, end: 20110210
  2. ASPIRIN [Concomitant]
     Indication: PROPHYLAXIS
     Dosage: 100 MILLIGRAM
     Route: 048
     Dates: end: 20110105
  3. VALTREX [Concomitant]
     Dosage: 1000 MILLIGRAM
     Route: 048
     Dates: start: 20110106, end: 20110216
  4. FLOMAX [Concomitant]
     Dosage: 300 MILLIGRAM
     Route: 048
     Dates: start: 20110106, end: 20110216
  5. BAKTAR [Concomitant]
     Indication: PROPHYLAXIS
     Dosage: 1 TABLET
     Route: 048
     Dates: end: 20110105
  6. KOBALNON [Concomitant]
     Indication: PROPHYLAXIS
     Dosage: 1.5 GRAM
     Route: 048
     Dates: end: 20110105
  7. DUROTEP [Concomitant]
     Dosage: 4.2 MILLIGRAM
     Route: 062
     Dates: start: 20110106, end: 20110216
  8. ELASPOL [Concomitant]
     Indication: MULTIPLE MYELOMA
     Dosage: 300 MILLIGRAM
     Route: 041
     Dates: start: 20110219, end: 20110225
  9. LOXONIN [Concomitant]
     Dosage: 120 MILLIGRAM
     Route: 048
     Dates: start: 20110106, end: 20110216
  10. PL [Concomitant]
     Dosage: 3 GRAM
     Route: 048
     Dates: end: 20110105
  11. FUNGUARD [Concomitant]
     Indication: MULTIPLE MYELOMA
     Dosage: 150 MILLIGRAM
     Route: 041
     Dates: start: 20110217, end: 20110223
  12. REVLIMID [Suspect]
     Dosage: 5 MILLIGRAM
     Route: 048
     Dates: start: 20110106, end: 20110126
  13. LENADEX [Suspect]
     Indication: MULTIPLE MYELOMA
     Dosage: 20 MILLIGRAM
     Route: 048
     Dates: start: 20110106, end: 20110120
  14. BAKTAR [Concomitant]
     Dosage: 1 TABLET
     Route: 048
     Dates: start: 20110106, end: 20110216
  15. AMLODIPINE [Concomitant]
     Dosage: 5 MILLIGRAM
     Route: 048
     Dates: start: 20110106, end: 20110216
  16. FLOMAX [Concomitant]
     Indication: PROPHYLAXIS
     Dosage: 300 MILLIGRAM
     Route: 048
     Dates: end: 20110105
  17. PL [Concomitant]
     Dosage: 3 GRAM
     Route: 048
     Dates: start: 20110106, end: 20110216
  18. BENAMBAX [Concomitant]
     Indication: MULTIPLE MYELOMA
     Dosage: 200 MILLIGRAM
     Route: 041
     Dates: start: 20110224, end: 20110225
  19. FLUCONAZOLE [Concomitant]
     Dosage: 200 MILLIGRAM
     Route: 048
     Dates: start: 20110106, end: 20110216
  20. LOXONIN [Concomitant]
     Dosage: 120 MILLIGRAM
     Route: 048
     Dates: end: 20110105
  21. KOBALNON [Concomitant]
     Dosage: 1.5 GRAM
     Route: 048
     Dates: start: 20110106, end: 20110216
  22. DUROTEP [Concomitant]
     Dosage: 4.2 MILLIGRAM
     Route: 062
     Dates: end: 20110105
  23. VALTREX [Concomitant]
     Indication: PROPHYLAXIS
     Dosage: 1000 MILLIGRAM
     Route: 048
     Dates: end: 20110105
  24. FOY [Concomitant]
     Dosage: 2000 MILLIGRAM
     Route: 041
     Dates: start: 20110224, end: 20110225
  25. CATABON [Concomitant]
     Indication: MULTIPLE MYELOMA
     Dosage: 2.5 MILLIGRAM
     Route: 041
     Dates: start: 20110219, end: 20110225
  26. LASIX [Concomitant]
     Indication: MULTIPLE MYELOMA
     Dosage: 20 MILLIGRAM
     Route: 041
     Dates: start: 20110222, end: 20110225
  27. FLUCONAZOLE [Concomitant]
     Indication: PROPHYLAXIS
     Dosage: 200 MILLIGRAM
     Route: 048
     Dates: end: 20110105
  28. AMLODIPINE [Concomitant]
     Indication: HYPERTENSION
     Dosage: 5 MILLIGRAM
     Route: 048
     Dates: end: 20110105
  29. BROTIZOLAM [Concomitant]
     Dosage: .25 MILLIGRAM
     Route: 048
     Dates: end: 20110105
  30. GRAN [Concomitant]
     Dosage: 75 MILLIGRAM
     Route: 058
     Dates: start: 20110221, end: 20110225
  31. FOY [Concomitant]
     Indication: MULTIPLE MYELOMA
     Dosage: 1000 MILLIGRAM
     Route: 041
     Dates: start: 20110219, end: 20110223
  32. PASIL [Concomitant]
     Indication: MULTIPLE MYELOMA
     Dosage: 1000 MILLIGRAM
     Route: 041
     Dates: start: 20110224, end: 20110225
  33. FENTANYL [Concomitant]
     Indication: MULTIPLE MYELOMA
     Dosage: .6 MILLIGRAM
     Route: 041
     Dates: start: 20110225
  34. REVLIMID [Suspect]
     Dosage: 5 MILLIGRAM
     Route: 048
     Dates: start: 20110203, end: 20110216
  35. GRAN [Concomitant]
     Indication: MULTIPLE MYELOMA
     Dosage: 75 MILLIGRAM
     Route: 058
     Dates: start: 20110216, end: 20110218
  36. REVLIMID [Suspect]
     Indication: MULTIPLE MYELOMA
     Dosage: 10 MILLIGRAM
     Route: 048
     Dates: start: 20101209, end: 20101229
  37. ASPIRIN [Concomitant]
     Dosage: 100 MILLIGRAM
     Route: 048
     Dates: start: 20110106, end: 20110216
  38. BROTIZOLAM [Concomitant]
     Dosage: .25 MILLIGRAM
     Route: 048
     Dates: start: 20110106, end: 20110216
  39. DORMICUM [Concomitant]
     Indication: MULTIPLE MYELOMA
     Dosage: 180 MILLIGRAM
     Route: 030
     Dates: start: 20110219, end: 20110225

REACTIONS (6)
  - THROMBOCYTOPENIA [None]
  - SEPSIS [None]
  - INFLAMMATION [None]
  - HAEMOGLOBIN DECREASED [None]
  - INFLUENZA [None]
  - PNEUMONIA VIRAL [None]
